FAERS Safety Report 4984014-9 (Version None)
Quarter: 2006Q1

REPORT INFORMATION
  Report Type: 
  Country: None (occurrence: None)
  Receive Date: 20060301
  Receipt Date: 20051024
  Transmission Date: 20060701
  Serious: No
  Sender: FDA-Public Use
  Company Number: S05-USA-04435-01

PATIENT
  Age: 72 Year
  Sex: Female

DRUGS (7)
  1. NAMENDA [Suspect]
     Indication: DEMENTIA
     Dosage: 5 MG QD PO
     Route: 048
     Dates: start: 20050916
  2. ARICEPT [Concomitant]
  3. CHROMIUM (CHROMIUM) [Concomitant]
  4. FCT-BALSAM PEAR (NOS) [Concomitant]
  5. VANADYL (NOS) [Concomitant]
  6. RED YEAST RICE (NOS) [Concomitant]
  7. FOSAMAX [Concomitant]

REACTIONS (3)
  - BLOOD GLUCOSE INCREASED [None]
  - GENITAL BURNING SENSATION [None]
  - TREMOR [None]
